FAERS Safety Report 9178510 (Version 2)
Quarter: 2013Q4

REPORT INFORMATION
  Report Type: Spontaneous
  Country: US (occurrence: US)
  Receive Date: 20130321
  Receipt Date: 20131226
  Transmission Date: 20140711
  Serious: Yes (Other)
  Sender: FDA-Public Use
  Company Number: US-BAYER-2013-034448

PATIENT
  Age: 25 Year
  Sex: Female

DRUGS (5)
  1. YAZ [Suspect]
  2. YASMIN [Suspect]
  3. OCELLA [Suspect]
  4. METOPROLOL [Concomitant]
     Indication: TACHYCARDIA
     Dosage: 25 MG, BID
  5. ADVIL [Concomitant]
     Indication: HEADACHE
     Dosage: 2 OR 3 TIMES A MONTH PRN

REACTIONS (4)
  - Cholecystectomy [None]
  - Cholecystitis chronic [None]
  - Injury [None]
  - Emotional distress [None]
